FAERS Safety Report 9348473 (Version 1)
Quarter: 2013Q2

REPORT INFORMATION
  Report Type: Spontaneous
  Country: US (occurrence: None)
  Receive Date: 20130613
  Receipt Date: 20130613
  Transmission Date: 20140414
  Serious: Yes (Hospitalization, Other)
  Sender: FDA-Public Use
  Company Number: None

PATIENT
  Age: 70 Year
  Sex: Male
  Weight: 91 kg

DRUGS (1)
  1. ADVAIR [Suspect]
     Dosage: PRIOR TO 2007 TO 2009; 250 DOSE
     Dates: start: 2007, end: 2009

REACTIONS (1)
  - Pneumonia [None]
